FAERS Safety Report 6332422-6 (Version None)
Quarter: 2009Q3

REPORT INFORMATION
  Report Type: 
  Country: None (occurrence: None)
  Receive Date: 20090828
  Receipt Date: 20090820
  Transmission Date: 20100115
  Serious: Yes (Other)
  Sender: FDA-Public Use
  Company Number: IT-AMGEN-UK357786

PATIENT
  Sex: Female
  Weight: 62 kg

DRUGS (1)
  1. PANITUMUMAB [Suspect]
     Indication: COLORECTAL CANCER
     Route: 042
     Dates: start: 20081203, end: 20090422

REACTIONS (4)
  - FOLLICULITIS [None]
  - GENERALISED ERYTHEMA [None]
  - PYREXIA [None]
  - URINARY TRACT INFECTION [None]
